FAERS Safety Report 4879582-1 (Version None)
Quarter: 2006Q1

REPORT INFORMATION
  Report Type: 
  Country: None (occurrence: None)
  Receive Date: 20060111
  Receipt Date: 20051228
  Transmission Date: 20060701
  Serious: Yes (Hospitalization)
  Sender: FDA-Public Use
  Company Number: DSA_27596_2005

PATIENT
  Age: 38 Year

DRUGS (8)
  1. ATIVAN [Suspect]
     Dosage: 2 MG Q DAY PO
     Route: 048
     Dates: start: 20040324
  2. CARBOPLATIN [Suspect]
     Dosage: 570 MG
     Dates: start: 20040325
  3. ACETAMINOPHEN W/ CODEINE [Suspect]
     Dosage: 2 TAB Q DAY PO
     Route: 048
     Dates: start: 20040325
  4. COLOXYL WITH SENNA [Suspect]
     Dosage: 2 TAB Q DAY PO
     Route: 048
     Dates: start: 20040325
  5. ETOPOSIDE [Suspect]
     Dosage: 200 MG IV
     Route: 042
     Dates: start: 20040324, end: 20040326
  6. HOLOXAN [Suspect]
     Dosage: 3 G IV
     Route: 042
     Dates: start: 20040324, end: 20040326
  7. MESNA [Suspect]
     Dosage: 3 G IV
     Route: 042
     Dates: start: 20040324, end: 20040326
  8. MESNA [Suspect]
     Dosage: 2 G Q DAY PO
     Route: 048
     Dates: start: 20040324, end: 20040326

REACTIONS (1)
  - CYSTITIS HAEMORRHAGIC [None]
